FAERS Safety Report 13797980 (Version 2)
Quarter: 2017Q3

REPORT INFORMATION
  Report Type: Report from Study
  Country: CO (occurrence: CO)
  Receive Date: 20170727
  Receipt Date: 20170804
  Transmission Date: 20171127
  Serious: Yes (Death)
  Sender: FDA-Public Use
  Company Number: CO-ROCHE-1969827

PATIENT
  Age: 72 Year
  Sex: Male

DRUGS (1)
  1. AVASTIN [Suspect]
     Active Substance: BEVACIZUMAB
     Indication: COLON CANCER
     Dosage: 360 MG EVERY 14 DAYS
     Route: 042
     Dates: start: 20170531, end: 20170628

REACTIONS (1)
  - Death [Fatal]

NARRATIVE: CASE EVENT DATE: 20170717
